FAERS Safety Report 23565361 (Version 1)
Quarter: 2024Q1

REPORT INFORMATION
  Report Type: Spontaneous
  Country: US (occurrence: US)
  Receive Date: 20240226
  Receipt Date: 20240226
  Transmission Date: 20240409
  Serious: Yes (Hospitalization, Other)
  Sender: FDA-Public Use
  Company Number: US-BRISTOL-MYERS SQUIBB COMPANY-2024-026699

PATIENT
  Age: 77 Year
  Sex: Female

DRUGS (1)
  1. LENALIDOMIDE [Suspect]
     Active Substance: LENALIDOMIDE
     Indication: Plasma cell myeloma
     Dosage: FREQUENCY: TAKE 1 CAPSULE BY MOUTH DAILY FOR 3 WEEKS ON FOLLOWED BY 1 WEEK OFF
     Route: 048

REACTIONS (5)
  - Arterial occlusive disease [Recovering/Resolving]
  - Insomnia [Recovering/Resolving]
  - Myocardial necrosis marker increased [Recovering/Resolving]
  - Chest pain [Recovering/Resolving]
  - Myocardial infarction [Recovering/Resolving]
